FAERS Safety Report 8180076-9 (Version None)
Quarter: 2012Q1

REPORT INFORMATION
  Report Type: 
  Country: None (occurrence: None)
  Receive Date: 20120302
  Receipt Date: 20120302
  Transmission Date: 20120608
  Serious: Yes (Other)
  Sender: FDA-Public Use
  Company Number: None

PATIENT
  Age: 58 Year
  Sex: Male
  Weight: 92.532 kg

DRUGS (1)
  1. ROGAINE [Suspect]
     Indication: ANDROGENETIC ALOPECIA
     Dosage: .5 CAP
     Route: 003
     Dates: start: 20120115, end: 20120210

REACTIONS (3)
  - RASH [None]
  - URTICARIA [None]
  - EYE SWELLING [None]
